FAERS Safety Report 4331019-7 (Version None)
Quarter: 2004Q1

REPORT INFORMATION
  Report Type: 
  Country: None (occurrence: None)
  Receive Date: 20040329
  Receipt Date: 20040319
  Transmission Date: 20041129
  Serious: Yes (Hospitalization)
  Sender: FDA-Public Use
  Company Number: APP200400283

PATIENT
  Age: 37 Year
  Sex: Female

DRUGS (3)
  1. PROFASI HP [Suspect]
     Indication: INFERTILITY
     Dosage: 5000 USP UNITS (5000 USP UNITS), INTRAMUSCULAR
     Route: 030
     Dates: start: 19990524, end: 19990524
  2. MENOTROPINS [Suspect]
     Indication: INFERTILITY
     Dosage: 150 USP UNITS, INTRAMUSCULAR
     Route: 030
     Dates: start: 19990511, end: 19990522
  3. MENOTROPINS [Suspect]
     Indication: INFERTILITY
     Dosage: 150 USP UNITS, INTRAMUSCULAR
     Route: 030
     Dates: start: 19990523, end: 19990523

REACTIONS (15)
  - ANTITHROMBIN III DECREASED [None]
  - ASCITES [None]
  - BASILAR ARTERY OCCLUSION [None]
  - CEREBRAL ARTERY EMBOLISM [None]
  - CEREBRAL INFARCTION [None]
  - COMA [None]
  - FIBRIN D DIMER INCREASED [None]
  - FIBRIN DEGRADATION PRODUCTS INCREASED [None]
  - HAEMATOCRIT INCREASED [None]
  - HYPERCOAGULATION [None]
  - OEDEMA PERIPHERAL [None]
  - OESTRADIOL INCREASED [None]
  - OVARIAN HYPERSTIMULATION SYNDROME [None]
  - RED BLOOD CELL COUNT INCREASED [None]
  - THROMBIN-ANTITHROMBIN III COMPLEX INCREASED [None]
